FAERS Safety Report 7937783-X (Version None)
Quarter: 2011Q4

REPORT INFORMATION
  Report Type: 
  Country: None (occurrence: None)
  Receive Date: 20111123
  Receipt Date: 20111118
  Transmission Date: 20120403
  Serious: Yes (Other)
  Sender: FDA-Public Use
  Company Number: US-BAYER-2011-112540

PATIENT
  Age: 85 Year
  Sex: Female

DRUGS (11)
  1. PLAVIX [Suspect]
     Dosage: UNK
     Dates: start: 20111001
  2. MICARDIS [Concomitant]
     Dosage: UNK
  3. MAGNESIUM OXIDE [Suspect]
     Dosage: UNK
     Dates: start: 20111001
  4. CALCIUM [Concomitant]
     Dosage: UNK
  5. CETIRIZINE HCL [Concomitant]
     Dosage: UNK
  6. METOPROLOL TARTRATE [Concomitant]
     Dosage: UNK
  7. LASIX [Concomitant]
  8. RANITIDINE [Concomitant]
     Dosage: UNK
  9. ARICEPT [Concomitant]
     Dosage: UNK
  10. GENERAL NUTRIENTS [Concomitant]
     Dosage: UNK
  11. ASPIRIN [Suspect]
     Dosage: UNK
     Dates: start: 20111001

REACTIONS (4)
  - TONGUE HAEMATOMA [None]
  - SWOLLEN TONGUE [None]
  - CONTUSION [None]
  - SKIN DISCOLOURATION [None]
